FAERS Safety Report 7811229-4 (Version None)
Quarter: 2011Q4

REPORT INFORMATION
  Report Type: 
  Country: None (occurrence: None)
  Receive Date: 20111011
  Receipt Date: 20110923
  Transmission Date: 20120403
  Serious: Yes (Other)
  Sender: FDA-Public Use
  Company Number: 11-602

PATIENT
  Age: 69 Year
  Sex: Female
  Weight: 95.24 kg

DRUGS (7)
  1. SIMVASTATIN [Concomitant]
  2. XALATAN [Concomitant]
  3. NAPROXEN [Suspect]
     Indication: ANALGESIC THERAPY
     Dosage: 440MG/BID/ORAL
     Route: 048
     Dates: start: 20110601
  4. B12 (CYANOCOBALAMIN-TANNN COMPLEX) [Concomitant]
  5. MICARDIS [Concomitant]
  6. PILOCARPINE [Concomitant]
  7. COSOPT (DORZOLAMID HYDROCHLORIDE, TIMOL MALEATE) [Concomitant]

REACTIONS (4)
  - INCORRECT DRUG ADMINISTRATION DURATION [None]
  - VISUAL ACUITY REDUCED [None]
  - GLAUCOMA [None]
  - CARDIAC FIBRILLATION [None]
